FAERS Safety Report 4791726-9 (Version None)
Quarter: 2005Q4

REPORT INFORMATION
  Report Type: 
  Country: None (occurrence: None)
  Receive Date: 20051005
  Receipt Date: 20050920
  Transmission Date: 20060501
  Serious: Yes (Disabling)
  Sender: FDA-Public Use
  Company Number: GBS050918488

PATIENT
  Age: 19 Year
  Sex: Female
  Weight: 87 kg

DRUGS (4)
  1. FLUOXETINE HCL [Suspect]
     Indication: DEPRESSION
     Dosage: 20 MG
     Dates: start: 20040825, end: 20050902
  2. DIFLUCAN [Concomitant]
  3. LEVONORGESTREL AND ETHINYL ESTRADIOL [Concomitant]
  4. CHLORAMPHENICOL [Concomitant]

REACTIONS (2)
  - CONVULSION [None]
  - DRUG INTERACTION [None]
